FAERS Safety Report 5008914-9 (Version None)
Quarter: 2006Q2

REPORT INFORMATION
  Report Type: 
  Country: None (occurrence: None)
  Receive Date: 20060404
  Receipt Date: 20051103
  Transmission Date: 20061013
  Serious: No
  Sender: FDA-Public Use
  Company Number: USA0511112665

PATIENT
  Sex: Female

DRUGS (2)
  1. CYMBALTA [Suspect]
     Indication: DEPRESSION
     Dosage: 30 MG, DAILY (1/D), ORAL
     Route: 048
     Dates: start: 20051101
  2. LIBRIUM [Concomitant]

REACTIONS (4)
  - FATIGUE [None]
  - HYPOKINESIA [None]
  - IMPAIRED DRIVING ABILITY [None]
  - NAUSEA [None]
